FAERS Safety Report 5582446-1 (Version None)
Quarter: 2007Q4

REPORT INFORMATION
  Report Type: 
  Country: None (occurrence: None)
  Receive Date: 20071130
  Receipt Date: 20070102
  Transmission Date: 20080405
  Serious: Yes (Other)
  Sender: FDA-Public Use
  Company Number: WAES 0701USA00132

PATIENT
  Age: 46 Year
  Sex: Female

DRUGS (5)
  1. FOSAMAX [Suspect]
     Indication: PROPHYLAXIS
     Dosage: 70 MG/WKY/PO
     Route: 048
     Dates: start: 19990901, end: 20050701
  2. ARAVA [Concomitant]
  3. VOLTAREN [Concomitant]
  4. METHOTREXATE [Concomitant]
  5. PREDNISONE TAB [Concomitant]

REACTIONS (7)
  - ANXIETY [None]
  - EYE DISORDER [None]
  - JAW DISORDER [None]
  - JAW FRACTURE [None]
  - MUSCLE ATROPHY [None]
  - OSTEOMYELITIS [None]
  - OSTEONECROSIS [None]
